FAERS Safety Report 18778330 (Version 1)
Quarter: 2021Q1

REPORT INFORMATION
  Report Type: Spontaneous
  Country: US (occurrence: US)
  Receive Date: 20210123
  Receipt Date: 20210123
  Transmission Date: 20210419
  Serious: No
  Sender: FDA-Public Use
  Company Number: US-NOVITIUMPHARMA-2021USNVP00001

PATIENT
  Age: 66 Year
  Sex: Female

DRUGS (1)
  1. LEVOCARNITINE ORAL SOLUTION, USP 1 G/10 ML + [Suspect]
     Active Substance: LEVOCARNITINE
     Indication: MITOCHONDRIAL MYOPATHY
     Dosage: 1G/10ML
     Route: 048
     Dates: start: 20210104

REACTIONS (5)
  - Paraesthesia oral [Unknown]
  - Heart rate increased [Not Recovered/Not Resolved]
  - Product use complaint [Unknown]
  - Abdominal discomfort [Not Recovered/Not Resolved]
  - Nausea [Not Recovered/Not Resolved]

NARRATIVE: CASE EVENT DATE: 20210104
